FAERS Safety Report 8355219-4 (Version None)
Quarter: 2012Q2

REPORT INFORMATION
  Report Type: 
  Country: None (occurrence: None)
  Receive Date: 20120511
  Receipt Date: 20120430
  Transmission Date: 20120825
  Serious: Yes (Other)
  Sender: FDA-Public Use
  Company Number: US-ELI_LILLY_AND_COMPANY-US201203005921

PATIENT
  Sex: Female

DRUGS (3)
  1. FORTEO [Suspect]
     Dosage: 20 UG, QD
  2. FORTEO [Suspect]
     Dosage: 20 UG, QD
  3. FORTEO [Suspect]
     Indication: OSTEOPOROSIS
     Dosage: 20 UG, QD
     Route: 058
     Dates: end: 20111209

REACTIONS (11)
  - LETHARGY [None]
  - HYPOPHAGIA [None]
  - GASTRIC DISORDER [None]
  - DIZZINESS [None]
  - DRUG INEFFECTIVE [None]
  - ILL-DEFINED DISORDER [None]
  - CONSTIPATION [None]
  - OSTEOARTHRITIS [None]
  - MENTAL IMPAIRMENT [None]
  - MALAISE [None]
  - POST POLIO SYNDROME [None]
